FAERS Safety Report 13233192 (Version 1)
Quarter: 2017Q1

REPORT INFORMATION
  Report Type: Report from Study
  Country: None (occurrence: BR)
  Receive Date: 20170215
  Receipt Date: 20170215
  Transmission Date: 20170428
  Serious: Yes (Hospitalization, Disabling)
  Sender: FDA-Public Use
  Company Number: BR-ABBVIE-16K-020-1591651-00

PATIENT
  Age: 53 Year
  Sex: Female
  Weight: 86 kg

DRUGS (3)
  1. HUMIRA [Suspect]
     Active Substance: ADALIMUMAB
     Indication: PSORIATIC ARTHROPATHY
     Route: 058
     Dates: start: 20140530
  2. HUMIRA [Suspect]
     Active Substance: ADALIMUMAB
     Route: 058
  3. ESCITALOPRAM [Concomitant]
     Active Substance: ESCITALOPRAM OXALATE
     Indication: DEPRESSION
     Route: 048

REACTIONS (14)
  - Arthralgia [Not Recovered/Not Resolved]
  - Drug ineffective [Not Recovered/Not Resolved]
  - Dengue fever [Recovered/Resolved]
  - Eye pain [Recovering/Resolving]
  - Headache [Recovered/Resolved]
  - Peripheral swelling [Recovered/Resolved]
  - Asthenopia [Unknown]
  - Pain in extremity [Unknown]
  - Rash macular [Not Recovered/Not Resolved]
  - Pyrexia [Recovered/Resolved]
  - Bedridden [Recovered/Resolved]
  - Rash pruritic [Not Recovered/Not Resolved]
  - Pain [Recovering/Resolving]
  - Platelet count abnormal [Not Recovered/Not Resolved]

NARRATIVE: CASE EVENT DATE: 2016
